FAERS Safety Report 9645351 (Version 1)
Quarter: 2013Q4

REPORT INFORMATION
  Report Type: Spontaneous
  Country: FR (occurrence: FR)
  Receive Date: 20131025
  Receipt Date: 20131025
  Transmission Date: 20140711
  Serious: Yes (Hospitalization)
  Sender: FDA-Public Use
  Company Number: FR-ROCHE-1292583

PATIENT
  Age: 58 Year
  Sex: Male

DRUGS (3)
  1. VALIUM [Suspect]
     Indication: PRODUCT USED FOR UNKNOWN INDICATION
     Route: 048
     Dates: start: 201306
  2. LIORESAL [Suspect]
     Indication: ALCOHOL DETOXIFICATION
     Route: 048
     Dates: start: 201307, end: 201308
  3. UMULINE NPH [Concomitant]
     Indication: DIABETES MELLITUS

REACTIONS (4)
  - Asthenia [Unknown]
  - Somnolence [Unknown]
  - Hallucination [Unknown]
  - Convulsion [Unknown]
